FAERS Safety Report 4602828-1 (Version None)
Quarter: 2005Q1

REPORT INFORMATION
  Report Type: 
  Country: None (occurrence: None)
  Receive Date: 20050307
  Receipt Date: 20050221
  Transmission Date: 20050727
  Serious: Yes (Other)
  Sender: FDA-Public Use
  Company Number: 26233

PATIENT
  Age: 37 Year
  Sex: Male

DRUGS (1)
  1. ALDARA [Suspect]
     Indication: SKIN PAPILLOMA
     Dosage: 0.4286 SACHET (1 SACHET, 3 IN 1 WEEK(S))
     Dates: start: 20050114

REACTIONS (7)
  - APATHY [None]
  - APPLICATION SITE ERYTHEMA [None]
  - CD4 LYMPHOCYTES INCREASED [None]
  - CD4/CD8 RATIO INCREASED [None]
  - CRYING [None]
  - EMOTIONAL DISORDER [None]
  - SUICIDAL IDEATION [None]
